FAERS Safety Report 13019769 (Version 1)
Quarter: 2016Q4

REPORT INFORMATION
  Report Type: Spontaneous
  Country: US (occurrence: US)
  Receive Date: 20161212
  Receipt Date: 20161212
  Transmission Date: 20170207
  Serious: Yes (Other)
  Sender: FDA-Public Use
  Company Number: US-ROCHE-1704965

PATIENT
  Age: 87 Year
  Sex: Male

DRUGS (1)
  1. LUCENTIS [Suspect]
     Active Substance: RANIBIZUMAB
     Indication: NEOVASCULAR AGE-RELATED MACULAR DEGENERATION
     Dosage: LAST DOSE PRIOR TOP SAE :29/JAN/2016
     Route: 050
     Dates: start: 20151120

REACTIONS (2)
  - Endophthalmitis [Recovering/Resolving]
  - Eye pain [Unknown]

NARRATIVE: CASE EVENT DATE: 20160131
